FAERS Safety Report 6977053-X (Version None)
Quarter: 2010Q3

REPORT INFORMATION
  Report Type: 
  Country: None (occurrence: None)
  Receive Date: 20100910
  Receipt Date: 20100225
  Transmission Date: 20110219
  Serious: Yes (Hospitalization)
  Sender: FDA-Public Use
  Company Number: JP-JNJCH-2010004758

PATIENT
  Age: 24 Month
  Sex: Female

DRUGS (1)
  1. ZYRTEC [Suspect]
     Indication: PRODUCT USED FOR UNKNOWN INDICATION
     Dosage: TEXT:1.2 G, 6 PACK OF 0.2GM
     Route: 048

REACTIONS (1)
  - ACCIDENTAL OVERDOSE [None]
